FAERS Safety Report 11518936 (Version 2)
Quarter: 2015Q3

REPORT INFORMATION
  Report Type: Report from Study
  Country: CH (occurrence: CH)
  Receive Date: 20150917
  Receipt Date: 20150928
  Transmission Date: 20151125
  Serious: Yes (Hospitalization, Other)
  Sender: FDA-Public Use
  Company Number: CH-ABBVIE-15P-151-1463923-00

PATIENT
  Sex: Male

DRUGS (1)
  1. DUODOPA [Suspect]
     Active Substance: CARBIDOPA\LEVODOPA
     Indication: PARKINSON^S DISEASE
     Dosage: 24H THERAPY: MD:8.5ML, CD DAY :3.6ML/H, CD PM:1ML/H, ED:2ML
     Route: 065

REACTIONS (5)
  - Device dislocation [Recovered/Resolved]
  - Dyspnoea [Unknown]
  - Embolism [Unknown]
  - On and off phenomenon [Unknown]
  - Thrombosis [Unknown]
